FAERS Safety Report 10788761 (Version 1)
Quarter: 2015Q1

REPORT INFORMATION
  Report Type: Spontaneous
  Country: US (occurrence: US)
  Receive Date: 20150212
  Receipt Date: 20150212
  Transmission Date: 20150721
  Serious: No
  Sender: FDA-Public Use
  Company Number: US-GLAXOSMITHKLINE-A1055729A

PATIENT

DRUGS (2)
  1. NICORETTE [Suspect]
     Active Substance: NICOTINE
     Indication: EX-TOBACCO USER
  2. CAFFEINE. [Suspect]
     Active Substance: CAFFEINE

REACTIONS (3)
  - Drug administration error [Unknown]
  - Insomnia [Recovered/Resolved]
  - Psychotic disorder [Recovered/Resolved]
